FAERS Safety Report 5745231-3 (Version None)
Quarter: 2008Q2

REPORT INFORMATION
  Report Type: 
  Country: None (occurrence: None)
  Receive Date: 20080521
  Receipt Date: 20080515
  Transmission Date: 20081010
  Serious: Yes (Hospitalization)
  Sender: FDA-Public Use
  Company Number: B0516979A

PATIENT
  Age: 38 Year
  Sex: Female

DRUGS (2)
  1. LAPATINIB [Suspect]
     Dosage: 1250MG PER DAY
     Route: 048
     Dates: start: 20080301, end: 20080401
  2. XELODA [Suspect]
     Dosage: 3500MG PER DAY
     Route: 048
     Dates: start: 20080301, end: 20080401

REACTIONS (3)
  - DIARRHOEA [None]
  - HYPOKALAEMIA [None]
  - VOMITING [None]
